FAERS Safety Report 21149341 (Version 2)
Quarter: 2022Q3

REPORT INFORMATION
  Report Type: Spontaneous
  Country: JP (occurrence: JP)
  Receive Date: 20220729
  Receipt Date: 20220811
  Transmission Date: 20221026
  Serious: Yes (Hospitalization)
  Sender: FDA-Public Use
  Company Number: JP-CHUGAI-2022028783

PATIENT

DRUGS (3)
  1. HERCEPTIN [Suspect]
     Active Substance: TRASTUZUMAB
     Indication: Rectal cancer
     Dosage: UNK, SINGLE
     Route: 041
     Dates: start: 20220701, end: 20220701
  2. PERJETA [Suspect]
     Active Substance: PERTUZUMAB
     Indication: Rectal cancer
     Dosage: UNK, SINGLE
     Route: 041
     Dates: start: 20220701, end: 20220701
  3. PANITUMUMAB [Suspect]
     Active Substance: PANITUMUMAB
     Indication: Rectal cancer
     Dosage: UNK
     Route: 041

REACTIONS (1)
  - Thrombocytopenia [Recovering/Resolving]

NARRATIVE: CASE EVENT DATE: 20220708
